FAERS Safety Report 9704306 (Version 2)
Quarter: 2013Q4

REPORT INFORMATION
  Report Type: Spontaneous
  Country: US (occurrence: US)
  Receive Date: 20131122
  Receipt Date: 20131122
  Transmission Date: 20140711
  Serious: No
  Sender: FDA-Public Use
  Company Number: US-MYLANLABS-2013S1004119

PATIENT
  Age: 64 Year
  Sex: Female

DRUGS (6)
  1. DOXAZOSIN [Suspect]
     Indication: HYPERTENSION
     Route: 048
     Dates: end: 20130217
  2. SYNTHROID [Concomitant]
  3. CATAPRESS [Concomitant]
     Dosage: 2 PATCHES
  4. MICARDIS HCT [Concomitant]
     Dosage: 80/25MG
  5. FLEXERIL [Concomitant]
  6. VITAMIN D [Concomitant]

REACTIONS (5)
  - Drug ineffective [Recovered/Resolved]
  - Blood pressure increased [Recovered/Resolved]
  - Headache [Recovered/Resolved]
  - Heart rate increased [Recovered/Resolved]
  - Reaction to drug excipients [Recovered/Resolved]
